FAERS Safety Report 4421863-X (Version None)
Quarter: 2004Q3

REPORT INFORMATION
  Report Type: 
  Country: None (occurrence: None)
  Receive Date: 20040804
  Receipt Date: 20040720
  Transmission Date: 20050211
  Serious: Yes (Hospitalization)
  Sender: FDA-Public Use
  Company Number: US-JNJFOC-20040404084

PATIENT
  Age: 55 Year
  Sex: Male
  Weight: 103.8737 kg

DRUGS (14)
  1. DURAGESIC [Suspect]
     Indication: PAIN
     Dosage: SEE IMAGE
     Route: 062
     Dates: start: 20031101, end: 20040201
  2. DURAGESIC [Suspect]
     Indication: PAIN
     Dosage: SEE IMAGE
     Route: 062
     Dates: start: 20040213
  3. VICODIN [Suspect]
     Indication: PAIN
     Dosage: 750 MG, 1 IN 6 HOUR, ORAL
     Route: 048
     Dates: start: 20040215
  4. CHLORDIAZEPOXIDE [Concomitant]
  5. AMIODARONE HCL [Concomitant]
  6. CLONIDINE [Concomitant]
  7. COUMADIN [Concomitant]
  8. DIGOXIN [Concomitant]
  9. NORVASC [Concomitant]
  10. PRAVACHOL [Concomitant]
  11. RESTORIL [Concomitant]
  12. METOPROLOL (METOPROLOL) [Concomitant]
  13. ZANTAC [Concomitant]
  14. RESTORIL [Concomitant]

REACTIONS (27)
  - ACUTE RESPIRATORY FAILURE [None]
  - ANAEMIA [None]
  - ASPIRATION [None]
  - ATRIAL FIBRILLATION [None]
  - BLOOD PH DECREASED [None]
  - BLOOD PH INCREASED [None]
  - CEREBRAL ATROPHY [None]
  - CHRONIC OBSTRUCTIVE AIRWAYS DISEASE [None]
  - CONVULSION [None]
  - DRUG DEPENDENCE [None]
  - FALL [None]
  - HYPERCAPNIA [None]
  - HYPERLIPIDAEMIA [None]
  - HYPERTENSION [None]
  - HYPOKALAEMIA [None]
  - HYPOMAGNESAEMIA [None]
  - HYPOPHOSPHATAEMIA [None]
  - LOSS OF CONSCIOUSNESS [None]
  - METABOLIC ENCEPHALOPATHY [None]
  - MULTIPLE FRACTURES [None]
  - NERVOUS SYSTEM DISORDER [None]
  - OBESITY [None]
  - OVERDOSE [None]
  - RESTRICTIVE PULMONARY DISEASE [None]
  - SEPSIS [None]
  - SINUSITIS [None]
  - SLEEP APNOEA SYNDROME [None]
